FAERS Safety Report 5419750-3 (Version None)
Quarter: 2007Q3

REPORT INFORMATION
  Report Type: 
  Country: None (occurrence: None)
  Receive Date: 20070815
  Receipt Date: 20070731
  Transmission Date: 20080115
  Serious: Yes (Other)
  Sender: FDA-Public Use
  Company Number: ACO_00370_2007

PATIENT
  Age: 25 Year
  Sex: Female
  Weight: 57 kg

DRUGS (1)
  1. SIRDALUD (SIRDALUD -  TIZANIDINE HYDROCHLORIDE) (NOT SPECIFIED) [Suspect]
     Indication: ARTHRALGIA
     Dosage: 1 DF QD ORAL
     Route: 048
     Dates: start: 20070717, end: 20070720

REACTIONS (3)
  - GENITAL HAEMORRHAGE [None]
  - HEADACHE [None]
  - VAGINAL HAEMORRHAGE [None]
